FAERS Safety Report 4827854-9 (Version None)
Quarter: 2005Q4

REPORT INFORMATION
  Report Type: 
  Country: None (occurrence: None)
  Receive Date: 20051114
  Receipt Date: 20051114
  Transmission Date: 20060501
  Serious: Yes (Life-Threatening)
  Sender: FDA-Public Use
  Company Number: None

PATIENT
  Age: 69 Year
  Sex: Female

DRUGS (18)
  1. COUMADIN [Suspect]
     Indication: ATRIAL FIBRILLATION
     Dosage: 3 MG  QHS   PO
     Route: 048
     Dates: start: 20050722, end: 20050809
  2. HEPARIN [Suspect]
     Indication: ATRIAL FIBRILLATION
     Dosage: 5000 UNITS     IV DRIP
     Route: 041
     Dates: start: 20050721, end: 20050803
  3. APAP TAB [Concomitant]
  4. DIGOXIN [Concomitant]
  5. APAP W/ CODEINE [Concomitant]
  6. FOSINOPRIL [Concomitant]
  7. ALBUTEROL SULFATE AND IPRATROPIUM BROMIDE [Concomitant]
  8. ENALAPRIL [Concomitant]
  9. ASPIRIN [Concomitant]
  10. GLYBURIDE [Concomitant]
  11. ZITHROMAX [Concomitant]
  12. INSULIN [Concomitant]
  13. CEFOTAXIME [Concomitant]
  14. PREDNISONE [Concomitant]
  15. LANSOPRAZOLE [Concomitant]
  16. SINGULAIR [Concomitant]
  17. PHENYTOIN [Concomitant]
  18. VERAPAMIL [Concomitant]

REACTIONS (1)
  - HAEMORRHAGE INTRACRANIAL [None]
